FAERS Safety Report 26122196 (Version 1)
Quarter: 2025Q4

REPORT INFORMATION
  Report Type: Spontaneous
  Country: CN (occurrence: CN)
  Receive Date: 20251204
  Receipt Date: 20251204
  Transmission Date: 20260118
  Serious: Yes (Life-Threatening, Hospitalization)
  Sender: PFIZER
  Company Number: CN-PFIZER INC-PV202500140017

PATIENT
  Age: 53 Year
  Sex: Female
  Weight: 60 kg

DRUGS (2)
  1. ELREXFIO [Suspect]
     Active Substance: ELRANATAMAB-BCMM
     Indication: Plasma cell myeloma
     Dosage: 76 MG, 1X/DAY
     Route: 058
     Dates: start: 20251104, end: 20251104
  2. POMALIDOMIDE [Concomitant]
     Active Substance: POMALIDOMIDE
     Indication: Symptomatic treatment
     Dosage: 2 MG, 1X/DAY
     Route: 048
     Dates: start: 20251011, end: 20251107

REACTIONS (3)
  - Cerebral haemorrhage [Not Recovered/Not Resolved]
  - Brain oedema [Not Recovered/Not Resolved]
  - Encephalitis viral [Recovering/Resolving]

NARRATIVE: CASE EVENT DATE: 20251108
